FAERS Safety Report 23155135 (Version 1)
Quarter: 2023Q4

REPORT INFORMATION
  Report Type: Spontaneous
  Country: PL (occurrence: PL)
  Receive Date: 20231107
  Receipt Date: 20231107
  Transmission Date: 20240110
  Serious: Yes (Other)
  Sender: FDA-Public Use
  Company Number: PL-ACRAF SpA-2023-032415

PATIENT

DRUGS (3)
  1. XCOPRI [Suspect]
     Active Substance: CENOBAMATE
     Indication: Partial seizures
     Dosage: 150 MILLIGRAM
     Route: 048
  2. ZONISAMIDE [Concomitant]
     Active Substance: ZONISAMIDE
     Indication: Product used for unknown indication
     Dosage: 200 MG (100 MG,2 IN 1 D)
     Route: 065
  3. BRIVARACETAM [Concomitant]
     Active Substance: BRIVARACETAM
     Indication: Product used for unknown indication
     Dosage: 200 MG (100 MG,2 IN 1 D)
     Route: 065

REACTIONS (1)
  - Type 1 diabetes mellitus [Unknown]

NARRATIVE: CASE EVENT DATE: 20230901
